FAERS Safety Report 19474325 (Version 2)
Quarter: 2021Q3

REPORT INFORMATION
  Report Type: Spontaneous
  Country: US (occurrence: US)
  Receive Date: 20210629
  Receipt Date: 20210716
  Transmission Date: 20211014
  Serious: Yes (Other)
  Sender: FDA-Public Use
  Company Number: US-PFIZER INC-2021593040

PATIENT
  Age: 63 Year
  Sex: Female

DRUGS (3)
  1. IBRANCE [Suspect]
     Active Substance: PALBOCICLIB
     Indication: BREAST CANCER
     Dosage: 75 MG EVERY OTHER DAY
     Route: 048
     Dates: start: 20210304
  2. TOZINAMERAN. [Suspect]
     Active Substance: TOZINAMERAN
     Indication: COVID-19 IMMUNISATION
     Dosage: DOSE 1, SINGLE
  3. FULVESTRANT. [Concomitant]
     Active Substance: FULVESTRANT

REACTIONS (7)
  - Nausea [Unknown]
  - Abnormal behaviour [Unknown]
  - Malaise [Unknown]
  - Paranasal sinus discomfort [Unknown]
  - Constipation [Unknown]
  - Dizziness [Unknown]
  - Posture abnormal [Unknown]
